FAERS Safety Report 7311551-4 (Version None)
Quarter: 2011Q1

REPORT INFORMATION
  Report Type: 
  Country: None (occurrence: None)
  Receive Date: 20110224
  Receipt Date: 20110217
  Transmission Date: 20110831
  Serious: Yes (Other)
  Sender: FDA-Public Use
  Company Number: DE-PFIZER INC-2011036183

PATIENT
  Age: 76 Year
  Sex: Male

DRUGS (1)
  1. TREVILOR RETARD [Suspect]
     Indication: DEPRESSION
     Dosage: 75 MG, 2X/DAY

REACTIONS (2)
  - FALL [None]
  - INJURY [None]
